FAERS Safety Report 4266909-7 (Version None)
Quarter: 2004Q1

REPORT INFORMATION
  Report Type: 
  Country: None (occurrence: None)
  Receive Date: 20040108
  Receipt Date: 20040108
  Transmission Date: 20041129
  Serious: Yes (Other)
  Sender: FDA-Public Use
  Company Number: None

PATIENT
  Age: 61 Year
  Sex: Female

DRUGS (1)
  1. PERPHENAZINE AND AMITRIPTYLINE HCL [Suspect]
     Dosage: 1 PO PRN
     Route: 048
     Dates: start: 20041226

REACTIONS (5)
  - DEPRESSION [None]
  - PHARMACEUTICAL PRODUCT COMPLAINT [None]
  - SENSATION OF HEAVINESS [None]
  - SOMNOLENCE [None]
  - VISION BLURRED [None]
